FAERS Safety Report 8103777-7 (Version None)
Quarter: 2012Q1

REPORT INFORMATION
  Report Type: 
  Country: None (occurrence: None)
  Receive Date: 20120201
  Receipt Date: 20120130
  Transmission Date: 20120608
  Serious: Yes (Other)
  Sender: FDA-Public Use
  Company Number: JP-B.I. PHARMACEUTICALS,INC./RIDGEFIELD-2012-BP-01891NB

PATIENT
  Sex: Male

DRUGS (1)
  1. PRADAXA [Suspect]
     Dosage: 300 MG
     Route: 065

REACTIONS (2)
  - LOSS OF CONSCIOUSNESS [None]
  - WRONG TECHNIQUE IN DRUG USAGE PROCESS [None]
